FAERS Safety Report 12991318 (Version 1)
Quarter: 2016Q4

REPORT INFORMATION
  Report Type: Spontaneous
  Country: IT (occurrence: IT)
  Receive Date: 20161201
  Receipt Date: 20161201
  Transmission Date: 20170207
  Serious: Yes (Other)
  Sender: FDA-Public Use
  Company Number: IT-MYLANLABS-2016M1051904

PATIENT

DRUGS (6)
  1. EFAVIRENZ [Suspect]
     Active Substance: EFAVIRENZ
     Indication: ACUTE HIV INFECTION
     Dosage: UNK
     Dates: start: 20081016
  2. CYCLOSPORINE. [Suspect]
     Active Substance: CYCLOSPORINE
     Indication: PRODUCT USED FOR UNKNOWN INDICATION
     Dosage: UNK
  3. CYCLOSPORINE. [Suspect]
     Active Substance: CYCLOSPORINE
     Dosage: UNK
  4. RITONAVIR. [Suspect]
     Active Substance: RITONAVIR
     Indication: ACUTE HIV INFECTION
     Dosage: UNK
     Dates: start: 20081016
  5. REYATAZ [Suspect]
     Active Substance: ATAZANAVIR SULFATE
     Indication: ACUTE HIV INFECTION
     Dosage: UNK
     Dates: start: 20081016
  6. REYATAZ [Suspect]
     Active Substance: ATAZANAVIR SULFATE
     Dosage: UNK
     Dates: start: 20121106

REACTIONS (8)
  - Renal failure [Unknown]
  - Neuropsychiatric symptoms [Unknown]
  - Herpes zoster [Unknown]
  - Hepatocellular carcinoma [Unknown]
  - Cytomegalovirus infection [Unknown]
  - Transaminases increased [Unknown]
  - Ophthalmic herpes simplex [Unknown]
  - Hypertension [Unknown]
